FAERS Safety Report 9716093 (Version 1)
Quarter: 2013Q4

REPORT INFORMATION
  Report Type: Spontaneous
  Country: CA (occurrence: CA)
  Receive Date: 20131127
  Receipt Date: 20131127
  Transmission Date: 20140711
  Serious: Yes (Other)
  Sender: FDA-Public Use
  Company Number: CA-MYLANLABS-2013S1026464

PATIENT
  Sex: Female

DRUGS (1)
  1. EPIPEN [Suspect]
     Indication: FOOD ALLERGY

REACTIONS (3)
  - Hypersensitivity [Unknown]
  - Reaction to drug excipients [Unknown]
  - Expired drug administered [Recovered/Resolved]
